FAERS Safety Report 13199346 (Version 2)
Quarter: 2019Q3

REPORT INFORMATION
  Report Type: Report from Study
  Country: US (occurrence: US)
  Receive Date: 20170208
  Receipt Date: 20190715
  Transmission Date: 20191004
  Serious: No
  Sender: FDA-Public Use
  Company Number: US-009507513-1702USA001704

PATIENT
  Sex: Male

DRUGS (1)
  1. KEYTRUDA [Suspect]
     Active Substance: PEMBROLIZUMAB
     Indication: LUNG NEOPLASM MALIGNANT
     Dosage: 200 MG EVERY 21 DAYS
     Route: 042

REACTIONS (4)
  - Adverse event [Unknown]
  - Product dose omission [Unknown]
  - Product supply issue [Unknown]
  - No adverse event [Unknown]
